FAERS Safety Report 4733774-0 (Version None)
Quarter: 2005Q3

REPORT INFORMATION
  Report Type: 
  Country: None (occurrence: None)
  Receive Date: 20050729
  Receipt Date: 20050726
  Transmission Date: 20060218
  Serious: Yes (Death)
  Sender: FDA-Public Use
  Company Number: J081-002-001993

PATIENT
  Age: 83 Year
  Sex: Male

DRUGS (11)
  1. ARICEPT [Suspect]
     Indication: DEMENTIA
     Dosage: 5 MG, 1 IN 1 D, ORAL
     Route: 048
  2. LANIRAPID             (METILDIGOXIN) [Suspect]
     Dosage: 0.1 MG, ORAL
     Route: 048
  3. UBRETID          (DISTIIGMINE BROMIDE) [Concomitant]
     Dosage: 5MG ORAL
     Route: 048
  4. LIVALO  (PITAVASTATIN CALCIUM) [Concomitant]
  5. PURSENNID  (SENNA LEAF) [Concomitant]
  6. WARFARIN [Concomitant]
  7. ALLOPURINOL [Concomitant]
  8. NU LOTAN (LOSARTAN POTASSIUM) [Concomitant]
  9. HARNAL (TAMSULOSIN HYDROCHLORIDE) [Concomitant]
  10. DIOVAN [Concomitant]
  11. ASPIRIN [Concomitant]

REACTIONS (7)
  - ACCIDENTAL OVERDOSE [None]
  - ARRHYTHMIA [None]
  - BLOOD PRESSURE DECREASED [None]
  - BRADYCARDIA [None]
  - CARDIAC ARREST [None]
  - CARDIAC FAILURE [None]
  - CARDIOMEGALY [None]
